APPROVED DRUG PRODUCT: METAXALONE
Active Ingredient: METAXALONE
Strength: 400MG
Dosage Form/Route: TABLET;ORAL
Application: A207466 | Product #002 | TE Code: AB
Applicant: SCIEGEN PHARMACEUTICALS INC
Approved: Mar 13, 2020 | RLD: No | RS: No | Type: RX